FAERS Safety Report 16785995 (Version 1)
Quarter: 2019Q3

REPORT INFORMATION
  Report Type: Report from Study
  Country: CA (occurrence: CA)
  Receive Date: 20190909
  Receipt Date: 20190909
  Transmission Date: 20191005
  Serious: Yes (Hospitalization, Other)
  Sender: FDA-Public Use
  Company Number: CA-BRISTOL-MYERS SQUIBB COMPANY-BMS-2017-096877

PATIENT
  Age: 77 Year
  Sex: Female

DRUGS (1)
  1. ABATACEPT [Suspect]
     Active Substance: ABATACEPT
     Indication: RHEUMATOID ARTHRITIS
     Dosage: 750 MILLIGRAM, Q4WK
     Route: 042
     Dates: start: 20170608

REACTIONS (10)
  - Malaise [Unknown]
  - Adverse event [Recovered/Resolved]
  - Renal disorder [Unknown]
  - Lower respiratory tract infection [Unknown]
  - Hypotension [Unknown]
  - Dizziness [Unknown]
  - Lung infection [Unknown]
  - Infection [Recovered/Resolved]
  - Dyspnoea [Unknown]
  - Nasopharyngitis [Unknown]

NARRATIVE: CASE EVENT DATE: 20171025
